FAERS Safety Report 6209111-1 (Version None)
Quarter: 2009Q2

REPORT INFORMATION
  Report Type: 
  Country: None (occurrence: None)
  Receive Date: 20090522
  Receipt Date: 20090126
  Transmission Date: 20091009
  Serious: No
  Sender: FDA-Public Use
  Company Number: 8041832

PATIENT
  Age: 60 Year
  Sex: Female
  Weight: 65.7 kg

DRUGS (9)
  1. CIMZIA [Suspect]
     Indication: CROHN'S DISEASE
     Dosage: 400 MG SC
     Route: 058
     Dates: start: 20090109
  2. MELOXICAM [Concomitant]
  3. AZATHIOPRINE [Concomitant]
  4. DICYCLOMINE [Concomitant]
  5. DILTIAZEM [Concomitant]
  6. ALENDRONATE SODIUM [Concomitant]
  7. B100 [Concomitant]
  8. MULTI-VITAMIN [Concomitant]
  9. CALCIUM PLUS [Concomitant]

REACTIONS (1)
  - PAIN IN JAW [None]
